FAERS Safety Report 19546581 (Version 2)
Quarter: 2021Q3

REPORT INFORMATION
  Report Type: Spontaneous
  Country: US (occurrence: US)
  Receive Date: 20210715
  Receipt Date: 20210722
  Transmission Date: 20211014
  Serious: No
  Sender: FDA-Public Use
  Company Number: US-JNJFOC-20210726159

PATIENT
  Age: 45 Year
  Sex: Male

DRUGS (1)
  1. MENS ROGAINE EXTRA STRENGTH [Suspect]
     Active Substance: MINOXIDIL
     Indication: ALOPECIA
     Dosage: HE SIMPLY FOLLOWED THE INSTRUCTIONS ON HOW MUCH HE SHOULD BE APPLYING TWICE A DAY
     Route: 065
     Dates: start: 202103

REACTIONS (1)
  - Drug ineffective [Unknown]
